FAERS Safety Report 12411204 (Version 1)
Quarter: 2016Q2

REPORT INFORMATION
  Report Type: Report from Study
  Country: US (occurrence: US)
  Receive Date: 20160527
  Receipt Date: 20160527
  Transmission Date: 20160815
  Serious: No
  Sender: FDA-Public Use
  Company Number: US-009507513-1605USA001872

PATIENT
  Age: 19 Year
  Sex: Female

DRUGS (1)
  1. IMPLANON [Suspect]
     Active Substance: ETONOGESTREL
     Dosage: UNK
     Route: 059
     Dates: start: 20130906, end: 20160427

REACTIONS (3)
  - Medical device removal [Recovered/Resolved]
  - Device deployment issue [Recovered/Resolved]
  - Fibrosis [Unknown]

NARRATIVE: CASE EVENT DATE: 20130906
